FAERS Safety Report 5963350-3 (Version None)
Quarter: 2008Q4

REPORT INFORMATION
  Report Type: 
  Country: None (occurrence: None)
  Receive Date: 20081124
  Receipt Date: 20081118
  Transmission Date: 20090506
  Serious: Yes (Other)
  Sender: FDA-Public Use
  Company Number: A0757705A

PATIENT
  Sex: Female

DRUGS (1)
  1. ZYBAN [Suspect]
     Indication: DRUG USE FOR UNKNOWN INDICATION
     Dosage: 1TAB SINGLE DOSE
     Route: 048
     Dates: start: 20010101

REACTIONS (9)
  - AGGRESSION [None]
  - DECREASED INTEREST [None]
  - DISSOCIATION [None]
  - FEELING ABNORMAL [None]
  - ILL-DEFINED DISORDER [None]
  - MENTAL RETARDATION [None]
  - PERSONALITY DISORDER [None]
  - SPEECH DISORDER [None]
  - TREMOR [None]
